FAERS Safety Report 23337762 (Version 3)
Quarter: 2024Q2

REPORT INFORMATION
  Report Type: Spontaneous
  Country: CO (occurrence: CO)
  Receive Date: 20231226
  Receipt Date: 20240627
  Transmission Date: 20240715
  Serious: Yes (Other)
  Sender: FDA-Public Use
  Company Number: CO-GLAXOSMITHKLINE-CO2023AMR132860

PATIENT

DRUGS (5)
  1. MEPOLIZUMAB [Suspect]
     Active Substance: MEPOLIZUMAB
     Indication: Asthma
     Dosage: 100 MG, MO (INJECTION)
     Dates: start: 20220214
  2. MEPOLIZUMAB [Suspect]
     Active Substance: MEPOLIZUMAB
     Dosage: 100 MG, Q4W
  3. MEPOLIZUMAB [Suspect]
     Active Substance: MEPOLIZUMAB
     Indication: Product used for unknown indication
     Dosage: UNK
     Dates: start: 20230918
  4. MEPOLIZUMAB [Suspect]
     Active Substance: MEPOLIZUMAB
  5. NUCALA [Suspect]
     Active Substance: MEPOLIZUMAB
     Indication: Product used for unknown indication
     Dosage: UNK
     Dates: start: 20240118

REACTIONS (16)
  - Colitis [Not Recovered/Not Resolved]
  - Pyrexia [Recovering/Resolving]
  - Malaise [Recovering/Resolving]
  - Injection site pain [Recovered/Resolved]
  - Injection site swelling [Recovering/Resolving]
  - Injection site discomfort [Recovering/Resolving]
  - Injection site inflammation [Recovering/Resolving]
  - Hyperhidrosis [Recovering/Resolving]
  - Nasopharyngitis [Recovering/Resolving]
  - Diarrhoea [Recovered/Resolved]
  - Discomfort [Recovering/Resolving]
  - Asthenia [Recovering/Resolving]
  - Headache [Recovered/Resolved]
  - Pain [Recovered/Resolved]
  - Abdominal injury [Recovered/Resolved]
  - Feeling of despair [Not Recovered/Not Resolved]

NARRATIVE: CASE EVENT DATE: 20230918
